FAERS Safety Report 9726288 (Version 4)
Quarter: 2013Q4

REPORT INFORMATION
  Report Type: Report from Study
  Country: CA (occurrence: CA)
  Receive Date: 20131203
  Receipt Date: 20131231
  Transmission Date: 20140711
  Serious: Yes (Other)
  Sender: FDA-Public Use
  Company Number: CA-ABBVIE-13P-028-1056874-00

PATIENT
  Age: 38 Year
  Sex: Male
  Weight: 53.12 kg

DRUGS (2)
  1. HUMIRA [Suspect]
     Indication: CROHN^S DISEASE
     Route: 058
     Dates: start: 20081110, end: 201301
  2. HUMIRA [Suspect]
     Route: 058
     Dates: start: 201301, end: 201311

REACTIONS (4)
  - Gastrointestinal disorder [Recovered/Resolved]
  - Abdominal abscess [Recovered/Resolved]
  - Pyrexia [Not Recovered/Not Resolved]
  - Intestinal obstruction [Not Recovered/Not Resolved]
